FAERS Safety Report 9328258 (Version 1)
Quarter: 2013Q2

REPORT INFORMATION
  Report Type: Spontaneous
  Country: US (occurrence: US)
  Receive Date: 20130604
  Receipt Date: 20130604
  Transmission Date: 20140414
  Serious: Yes (Hospitalization, Other)
  Sender: FDA-Public Use
  Company Number: US-BRISTOL-MYERS SQUIBB COMPANY-18860403

PATIENT
  Age: 52 Year
  Sex: Female

DRUGS (3)
  1. SPRYCEL [Suspect]
     Indication: CHRONIC MYELOID LEUKAEMIA
     Route: 048
     Dates: start: 20130424, end: 20130501
  2. ALEVE [Concomitant]
  3. METOPROLOL [Concomitant]

REACTIONS (2)
  - Subdural haematoma [Recovering/Resolving]
  - Platelet dysfunction [Unknown]
